FAERS Safety Report 4634095-7 (Version None)
Quarter: 2005Q2

REPORT INFORMATION
  Report Type: 
  Country: None (occurrence: None)
  Receive Date: 20050413
  Receipt Date: 20050408
  Transmission Date: 20051028
  Serious: Yes (Hospitalization)
  Sender: FDA-Public Use
  Company Number: US-GLAXOSMITHKLINE-A0553380A

PATIENT
  Sex: Male

DRUGS (5)
  1. ESKALITH CR [Suspect]
     Dosage: 450MG TWICE PER DAY
     Route: 048
  2. LITHIUM SR [Suspect]
     Dosage: 450MG TWICE PER DAY
     Route: 048
  3. SLEEPING PILLS [Concomitant]
     Indication: SLEEP DISORDER
  4. SYNTHROID [Concomitant]
     Indication: DRUG USE FOR UNKNOWN INDICATION
  5. WATER PILL [Concomitant]

REACTIONS (4)
  - ACCIDENTAL OVERDOSE [None]
  - DRUG LEVEL INCREASED [None]
  - INSOMNIA [None]
  - WEIGHT INCREASED [None]
